APPROVED DRUG PRODUCT: KEFTAB
Active Ingredient: CEPHALEXIN HYDROCHLORIDE
Strength: EQ 333MG BASE
Dosage Form/Route: TABLET;ORAL
Application: N050614 | Product #003
Applicant: ELI LILLY AND CO
Approved: May 16, 1988 | RLD: No | RS: No | Type: DISCN